FAERS Safety Report 7387432-7 (Version None)
Quarter: 2011Q1

REPORT INFORMATION
  Report Type: 
  Country: None (occurrence: None)
  Receive Date: 20110331
  Receipt Date: 20110328
  Transmission Date: 20110831
  Serious: Yes (Hospitalization, Other)
  Sender: FDA-Public Use
  Company Number: US-ABBOTT-11P-163-0700961-00

PATIENT
  Sex: Female
  Weight: 61.29 kg

DRUGS (7)
  1. VITAMIN D [Concomitant]
     Indication: VITAMIN SUPPLEMENTATION
  2. DIFLUCAN [Suspect]
     Dates: start: 20110209, end: 20110210
  3. HUMIRA [Suspect]
     Indication: CROHN'S DISEASE
     Dosage: LOADING DOSE
     Route: 058
     Dates: start: 20110126, end: 20110126
  4. HUMIRA [Suspect]
     Indication: PSORIASIS
     Route: 058
  5. ACIPHEX [Concomitant]
     Indication: GASTROOESOPHAGEAL REFLUX DISEASE
     Dosage: DAILY
  6. FOLIC ACID [Concomitant]
     Indication: VITAMIN SUPPLEMENTATION
     Dosage: DAILY
  7. DIFLUCAN [Suspect]
     Indication: INFECTION
     Dates: start: 20110212, end: 20110215

REACTIONS (22)
  - HEADACHE [None]
  - NASAL CONGESTION [None]
  - SECRETION DISCHARGE [None]
  - MALAISE [None]
  - PAIN [None]
  - FATIGUE [None]
  - STAPHYLOCOCCAL INFECTION [None]
  - PYREXIA [None]
  - WHEEZING [None]
  - LIP HAEMORRHAGE [None]
  - INJECTION SITE HAEMORRHAGE [None]
  - ARTHRALGIA [None]
  - INJECTION SITE PAIN [None]
  - PSORIASIS [None]
  - SKIN FISSURES [None]
  - INJECTION SITE HAEMATOMA [None]
  - WRONG TECHNIQUE IN DRUG USAGE PROCESS [None]
  - INFLUENZA LIKE ILLNESS [None]
  - INCORRECT DOSE ADMINISTERED [None]
  - CHAPPED LIPS [None]
  - OEDEMA [None]
  - INFECTION [None]
